FAERS Safety Report 6175308-2 (Version None)
Quarter: 2009Q2

REPORT INFORMATION
  Report Type: 
  Country: None (occurrence: None)
  Receive Date: 20090430
  Receipt Date: 20090428
  Transmission Date: 20091009
  Serious: Yes (Life-Threatening, Other)
  Sender: FDA-Public Use
  Company Number: FI-ABBOTT-09P-055-0560389-00

PATIENT
  Sex: Male

DRUGS (2)
  1. HUMIRA [Suspect]
     Indication: CROHN'S DISEASE
     Dosage: 80-40MG, EVERY OTHER WEEK
     Dates: start: 20080501, end: 20090202
  2. INFLIXIMAB, RECOMBINANT LYOPHILIZED POWDER [Suspect]
     Indication: CROHN'S DISEASE
     Dosage: 22 TIMES 5-10MG/KG/8W
     Route: 042
     Dates: start: 20010101, end: 20060101

REACTIONS (1)
  - ANAL CANCER STAGE 0 [None]
